FAERS Safety Report 14532694 (Version 14)
Quarter: 2018Q3

REPORT INFORMATION
  Report Type: Spontaneous
  Country: US (occurrence: US)
  Receive Date: 20180214
  Receipt Date: 20180722
  Transmission Date: 20181010
  Serious: Yes (Hospitalization, Other)
  Sender: FDA-Public Use
  Company Number: US-BIOGEN-2018BI00508408

PATIENT
  Age: 57 Year
  Sex: Male
  Weight: 135.6 kg

DRUGS (25)
  1. AVONEX [Suspect]
     Active Substance: INTERFERON BETA-1A
     Route: 065
     Dates: end: 2013
  2. LISINOPRIL. [Concomitant]
     Active Substance: LISINOPRIL
     Indication: PRODUCT USED FOR UNKNOWN INDICATION
     Route: 065
  3. CELEBREX [Concomitant]
     Active Substance: CELECOXIB
     Indication: PRODUCT USED FOR UNKNOWN INDICATION
     Route: 065
  4. PERCOCET [Concomitant]
     Active Substance: ACETAMINOPHEN\OXYCODONE HYDROCHLORIDE
     Indication: PRODUCT USED FOR UNKNOWN INDICATION
     Route: 065
  5. VOLTAREN [Concomitant]
     Active Substance: DICLOFENAC SODIUM
     Indication: PRODUCT USED FOR UNKNOWN INDICATION
     Route: 062
  6. NASONEX [Concomitant]
     Active Substance: MOMETASONE FUROATE
     Dosage: 2 SPRAYS EACH NOSTRIL QD PRN ? 1 BOTTLE.
     Route: 045
  7. AVONEX [Suspect]
     Active Substance: INTERFERON BETA-1A
     Route: 030
     Dates: start: 20090903
  8. AVONEX [Suspect]
     Active Substance: INTERFERON BETA-1A
     Route: 065
     Dates: end: 201001
  9. AMPYRA [Concomitant]
     Active Substance: DALFAMPRIDINE
     Indication: ATAXIA
     Route: 048
     Dates: start: 20110331
  10. TRILEPTAL [Concomitant]
     Active Substance: OXCARBAZEPINE
     Indication: PRODUCT USED FOR UNKNOWN INDICATION
     Route: 065
  11. MIRALAX [Concomitant]
     Active Substance: POLYETHYLENE GLYCOL 3350
     Indication: PRODUCT USED FOR UNKNOWN INDICATION
     Route: 065
  12. SYNTHROID [Concomitant]
     Active Substance: LEVOTHYROXINE SODIUM
     Indication: PRODUCT USED FOR UNKNOWN INDICATION
     Route: 048
  13. MIRALAX [Concomitant]
     Active Substance: POLYETHYLENE GLYCOL 3350
     Dosage: PRN
     Route: 048
  14. NASONEX [Concomitant]
     Active Substance: MOMETASONE FUROATE
     Indication: PRODUCT USED FOR UNKNOWN INDICATION
     Route: 065
  15. AVONEX [Suspect]
     Active Substance: INTERFERON BETA-1A
     Route: 030
     Dates: start: 200904
  16. AVONEX [Suspect]
     Active Substance: INTERFERON BETA-1A
     Route: 030
  17. AVONEX [Suspect]
     Active Substance: INTERFERON BETA-1A
     Indication: RELAPSING-REMITTING MULTIPLE SCLEROSIS
     Route: 065
     Dates: start: 2008
  18. AVONEX [Suspect]
     Active Substance: INTERFERON BETA-1A
     Route: 030
     Dates: start: 20090911, end: 20110804
  19. LISINOPRIL. [Concomitant]
     Active Substance: LISINOPRIL
     Route: 048
  20. SYNTHROID [Concomitant]
     Active Substance: LEVOTHYROXINE SODIUM
     Route: 048
  21. CELEBREX [Concomitant]
     Active Substance: CELECOXIB
     Route: 048
  22. AVONEX [Suspect]
     Active Substance: INTERFERON BETA-1A
     Route: 030
     Dates: end: 20110804
  23. LYRICA [Concomitant]
     Active Substance: PREGABALIN
     Indication: PRODUCT USED FOR UNKNOWN INDICATION
     Route: 065
  24. LYRICA [Concomitant]
     Active Substance: PREGABALIN
     Route: 048
  25. IBUPROFEN. [Concomitant]
     Active Substance: IBUPROFEN
     Indication: PRODUCT USED FOR UNKNOWN INDICATION
     Route: 065
     Dates: start: 20100716

REACTIONS (29)
  - Postoperative wound infection [Recovered/Resolved]
  - Injection site swelling [Recovered/Resolved]
  - Tenderness [Recovered/Resolved]
  - Multiple sclerosis [Not Recovered/Not Resolved]
  - Neck pain [Recovered/Resolved]
  - Prostate cancer [Recovered/Resolved]
  - Constipation [Recovered/Resolved]
  - Photosensitivity reaction [Not Recovered/Not Resolved]
  - Rash [Recovered/Resolved]
  - Nausea [Not Recovered/Not Resolved]
  - Vein disorder [Recovered/Resolved]
  - Weight decreased [Unknown]
  - Ocular hyperaemia [Recovered/Resolved]
  - Post procedural complication [Recovered/Resolved]
  - Drug intolerance [Recovered/Resolved]
  - Streptococcal infection [Recovered/Resolved]
  - Dry mouth [Recovered/Resolved]
  - Dysphonia [Recovered/Resolved]
  - Injection site pain [Unknown]
  - Deep vein thrombosis [Recovered/Resolved]
  - Multiple sclerosis relapse [Recovered/Resolved]
  - Tinnitus [Recovered/Resolved]
  - Insomnia [Unknown]
  - Lipoatrophy [Unknown]
  - Hypertension [Unknown]
  - Drug ineffective [Recovered/Resolved]
  - Chest pain [Recovered/Resolved]
  - Increased tendency to bruise [Not Recovered/Not Resolved]
  - Injection site urticaria [Recovered/Resolved]

NARRATIVE: CASE EVENT DATE: 2009
